FAERS Safety Report 7733333-1 (Version None)
Quarter: 2011Q3

REPORT INFORMATION
  Report Type: 
  Country: None (occurrence: None)
  Receive Date: 20110907
  Receipt Date: 20110901
  Transmission Date: 20111222
  Serious: No
  Sender: FDA-Public Use
  Company Number: US-PFIZER INC-2011205602

PATIENT
  Age: 38 Year
  Sex: Female

DRUGS (6)
  1. DOXYCYCLINE [Suspect]
     Indication: CELLULITIS
     Dosage: UNK
     Dates: start: 20110101, end: 20110801
  2. SEPTRA [Concomitant]
     Indication: CELLULITIS
     Dosage: UNK, EVERY12 HOURS
     Dates: start: 20110801
  3. SEPTRA [Concomitant]
     Indication: ABSCESS
  4. DOXYCYCLINE [Suspect]
     Indication: ABSCESS
  5. CLEOCIN HYDROCHLORIDE [Suspect]
     Indication: CELLULITIS
  6. CLEOCIN HYDROCHLORIDE [Suspect]
     Indication: ABSCESS
     Dosage: UNK, EVERY 8 HOURS
     Dates: start: 20110801

REACTIONS (3)
  - DRUG INEFFECTIVE [None]
  - ERYTHEMA [None]
  - IRRITABILITY [None]
